FAERS Safety Report 13500373 (Version 1)
Quarter: 2017Q2

REPORT INFORMATION
  Report Type: Spontaneous
  Country: FR (occurrence: FR)
  Receive Date: 20170501
  Receipt Date: 20170501
  Transmission Date: 20170830
  Serious: Yes (Death, Other)
  Sender: FDA-Public Use
  Company Number: FR-PFIZER INC-2017187198

PATIENT
  Age: 33 Year
  Sex: Male
  Weight: 53 kg

DRUGS (16)
  1. EPIVIR [Concomitant]
     Active Substance: LAMIVUDINE
  2. SOLU-MEDROL [Concomitant]
     Active Substance: METHYLPREDNISOLONE SODIUM SUCCINATE
  3. METHOTREXATE SODIUM. [Suspect]
     Active Substance: METHOTREXATE SODIUM
     Indication: CENTRAL NERVOUS SYSTEM LYMPHOMA
     Dosage: 4800 MG, CYCLIC
     Route: 042
  4. LOVENOX [Suspect]
     Active Substance: ENOXAPARIN SODIUM
     Dosage: 0.4 ML, DAILY
     Route: 058
  5. ZIAGEN [Concomitant]
     Active Substance: ABACAVIR SULFATE
  6. WELLVONE [Suspect]
     Active Substance: ATOVAQUONE
     Indication: PNEUMOCYSTIS JIROVECII PNEUMONIA
     Dosage: 2 DF, DAILY
     Route: 048
  7. CERUMENOL /00847001/ [Concomitant]
  8. DIAMOX /00016901/ [Concomitant]
     Active Substance: ACETAZOLAMIDE
  9. KEPPRA [Suspect]
     Active Substance: LEVETIRACETAM
     Indication: EPILEPSY
     Dosage: 2 DF, DAILY
     Route: 042
  10. VIRAMUNE [Suspect]
     Active Substance: NEVIRAPINE
     Indication: HIV TEST POSITIVE
     Dosage: 200 MG, DAILY
     Route: 048
  11. PARACETAMOL [Concomitant]
     Active Substance: ACETAMINOPHEN
  12. CERNEVIT [Concomitant]
     Active Substance: VITAMINS
  13. ORACILLINE /00001801/ [Concomitant]
     Active Substance: PENICILLIN V
     Indication: STAPHYLOCOCCAL BACTERAEMIA
  14. CALCIUM FOLINATE [Concomitant]
     Active Substance: LEUCOVORIN CALCIUM
  15. FUNGIZONE [Concomitant]
     Active Substance: AMPHOTERICIN B
  16. KALETRA [Concomitant]
     Active Substance: LOPINAVIR\RITONAVIR

REACTIONS (8)
  - Hypoxia [Fatal]
  - Coma [Unknown]
  - Neurological decompensation [Unknown]
  - Thrombocytopenia [Fatal]
  - Tracheal haemorrhage [Fatal]
  - Anaemia [Fatal]
  - Cardiac arrest [Fatal]
  - Leukopenia [Fatal]

NARRATIVE: CASE EVENT DATE: 2013
